FAERS Safety Report 12828107 (Version 7)
Quarter: 2021Q1

REPORT INFORMATION
  Report Type: Report from Study
  Country: US (occurrence: US)
  Receive Date: 20161007
  Receipt Date: 20210314
  Transmission Date: 20210419
  Serious: Yes (Hospitalization, Other)
  Sender: FDA-Public Use
  Company Number: US-SA-2016SA172926

PATIENT
  Age: 65 Year
  Sex: Male

DRUGS (2)
  1. ALEMTUZUMAB [Suspect]
     Active Substance: ALEMTUZUMAB
     Indication: MULTIPLE SCLEROSIS
     Dosage: 12 MG,QD
     Route: 041
     Dates: start: 20160912, end: 20160914
  2. ALEMTUZUMAB [Suspect]
     Active Substance: ALEMTUZUMAB
     Dosage: 12 MG,QD
     Route: 041
     Dates: start: 201609, end: 20160916

REACTIONS (10)
  - Rash [Unknown]
  - Dyspnoea [Recovered/Resolved]
  - Drug intolerance [Unknown]
  - Illness [Recovered/Resolved]
  - Hypoacusis [Not Recovered/Not Resolved]
  - Blood pressure fluctuation [Recovered/Resolved]
  - Pulmonary embolism [Recovered/Resolved]
  - Pulmonary thrombosis [Unknown]
  - Troponin increased [Unknown]
  - Condition aggravated [Not Recovered/Not Resolved]

NARRATIVE: CASE EVENT DATE: 201609
